FAERS Safety Report 6878962-2 (Version None)
Quarter: 2010Q3

REPORT INFORMATION
  Report Type: 
  Country: None (occurrence: None)
  Receive Date: 20100728
  Receipt Date: 20100716
  Transmission Date: 20110219
  Serious: Yes (Death, Hospitalization)
  Sender: FDA-Public Use
  Company Number: US-WATSON-2010-09574

PATIENT
  Sex: Female
  Weight: 66 kg

DRUGS (3)
  1. LUTERA 0.02/0.1-28 (WATSON LABORATORIES) [Suspect]
     Indication: PRODUCT USED FOR UNKNOWN INDICATION
     Dosage: 1 TABLET, DAILY
     Route: 048
     Dates: start: 20100523, end: 20100613
  2. LUTERA 0.02/0.1-28 (WATSON LABORATORIES) [Suspect]
     Dosage: 1 TABLET, DAILY
     Route: 048
     Dates: start: 20050101, end: 20100522
  3. DIOVAN                             /01319601/ [Suspect]
     Indication: HYPERTENSION
     Dosage: UNK TABLET, DAILY
     Route: 048
     Dates: start: 20050101, end: 20100614

REACTIONS (3)
  - DEEP VEIN THROMBOSIS [None]
  - LOSS OF CONSCIOUSNESS [None]
  - PULMONARY EMBOLISM [None]
